FAERS Safety Report 15883661 (Version 1)
Quarter: 2019Q1

REPORT INFORMATION
  Report Type: Spontaneous
  Country: US (occurrence: US)
  Receive Date: 20190107
  Receipt Date: 20190107
  Transmission Date: 20190417
  Serious: Yes (Hospitalization)
  Sender: FDA-Public Use
  Company Number: None

PATIENT
  Age: 38 Year
  Sex: Female

DRUGS (4)
  1. ENBREL [Suspect]
     Active Substance: ETANERCEPT
     Dosage: ?          OTHER FREQUENCY:OTHER;?
     Route: 058
     Dates: start: 20171230
  2. VESICARE [Concomitant]
     Active Substance: SOLIFENACIN SUCCINATE
  3. PREMARIN [Concomitant]
     Active Substance: ESTROGENS, CONJUGATED
  4. HYDROCORTISONE. [Concomitant]
     Active Substance: HYDROCORTISONE

REACTIONS (6)
  - Asthenia [None]
  - Therapy cessation [None]
  - Post procedural complication [None]
  - Arthralgia [None]
  - Swelling [None]
  - Rheumatoid arthritis [None]

NARRATIVE: CASE EVENT DATE: 20181221
